FAERS Safety Report 21808626 (Version 2)
Quarter: 2023Q2

REPORT INFORMATION
  Report Type: Spontaneous
  Country: BR (occurrence: BR)
  Receive Date: 20230103
  Receipt Date: 20230501
  Transmission Date: 20230721
  Serious: Yes (Death, Hospitalization)
  Sender: FDA-Public Use
  Company Number: BR-Accord-294353

PATIENT
  Age: 65 Year
  Sex: Male
  Weight: 87 kg

DRUGS (2)
  1. CISPLATIN [Suspect]
     Active Substance: CISPLATIN
     Indication: Cholangiocarcinoma
     Dosage: INTRAVENOUS DRIP; CYCLE 1-3. FREQUENCY WAS D1/D8
     Route: 042
     Dates: start: 20220908, end: 20221025
  2. GEMCITABINE [Suspect]
     Active Substance: GEMCITABINE
     Indication: Cholangiocarcinoma
     Dosage: INTRAVENOUS DRIP; CYCLE 1-3. FREQUENCY IS D1/D8
     Route: 042
     Dates: start: 20220908, end: 20221025

REACTIONS (1)
  - Abdominal sepsis [Fatal]

NARRATIVE: CASE EVENT DATE: 20221029
